FAERS Safety Report 6626630-4 (Version None)
Quarter: 2010Q1

REPORT INFORMATION
  Report Type: 
  Country: None (occurrence: None)
  Receive Date: 20100309
  Receipt Date: 20100309
  Transmission Date: 20100710
  Serious: Yes (Other)
  Sender: FDA-Public Use
  Company Number: None

PATIENT
  Sex: Male
  Weight: 89.3586 kg

DRUGS (2)
  1. SINGULAIR [Suspect]
     Indication: ASTHMA
     Dosage: 5MG 1 PO
     Route: 048
     Dates: start: 20080122, end: 20091117
  2. SINGULAIR [Suspect]
     Indication: HYPERSENSITIVITY
     Dosage: 5MG 1 PO
     Route: 048
     Dates: start: 20080122, end: 20091117

REACTIONS (11)
  - ABDOMINAL PAIN UPPER [None]
  - ANGER [None]
  - ANXIETY [None]
  - BACK PAIN [None]
  - CONSTIPATION [None]
  - EYE MOVEMENT DISORDER [None]
  - MOOD ALTERED [None]
  - NAUSEA [None]
  - REACTION TO PRESERVATIVES [None]
  - SUICIDAL IDEATION [None]
  - VOMITING [None]
